FAERS Safety Report 23678578 (Version 8)
Quarter: 2025Q2

REPORT INFORMATION
  Report Type: Spontaneous
  Country: US (occurrence: US)
  Receive Date: 20240327
  Receipt Date: 20250402
  Transmission Date: 20250716
  Serious: No
  Sender: NOVARTIS
  Company Number: US-002147023-NVSC2024US065886

PATIENT
  Age: 72 Year
  Sex: Male

DRUGS (3)
  1. MEKINIST [Suspect]
     Active Substance: TRAMETINIB DIMETHYL SULFOXIDE
     Indication: Pituitary tumour
     Dosage: 2 MG, QD (EVERY OTHER DAY)
     Route: 048
     Dates: start: 202402
  2. MEKINIST [Suspect]
     Active Substance: TRAMETINIB DIMETHYL SULFOXIDE
     Dosage: 1 MG, QD (1 TIME A DAY)
     Route: 048
     Dates: start: 202402
  3. TAFINLAR [Suspect]
     Active Substance: DABRAFENIB MESYLATE
     Indication: Pituitary tumour
     Dosage: 150 MG, BID (TAKE 2 CAPSULES BY MOUTH IN THE MORNING AND 2CAPSULES IN THE EVENING-TAKEN EVERY OTHER
     Route: 048
     Dates: start: 202402

REACTIONS (3)
  - Vision blurred [Recovering/Resolving]
  - Product use in unapproved indication [Unknown]
  - Dry eye [Unknown]

NARRATIVE: CASE EVENT DATE: 20240202
